FAERS Safety Report 5823172-0 (Version None)
Quarter: 2008Q3

REPORT INFORMATION
  Report Type: 
  Country: None (occurrence: None)
  Receive Date: 20080725
  Receipt Date: 20080718
  Transmission Date: 20090109
  Serious: Yes (Other)
  Sender: FDA-Public Use
  Company Number: PHHY2008GB14881

PATIENT
  Age: 58 Year
  Sex: Female

DRUGS (7)
  1. EMSELEX EXTENDED RELEASE [Suspect]
     Indication: URINARY INCONTINENCE
     Dosage: 7.5 MG, ONCE/SINGLE
     Route: 048
     Dates: start: 20080630, end: 20080701
  2. ACETYLSALICYLIC ACID SRT [Concomitant]
     Dosage: UNK
     Dates: start: 20061126
  3. EZETIMIBE [Concomitant]
     Dosage: 10 MG
     Route: 048
     Dates: start: 20061229
  4. GLUCOSAMINE [Concomitant]
  5. OMEPRAZOLE [Concomitant]
  6. RAMIPRIL [Concomitant]
     Dosage: 2.5 MG
  7. SIMVASTATIN [Concomitant]
     Dosage: 40 MG
     Route: 048
     Dates: start: 20061229

REACTIONS (3)
  - HEADACHE [None]
  - SENSORY LOSS [None]
  - TRANSIENT ISCHAEMIC ATTACK [None]
